FAERS Safety Report 6555926-X (Version None)
Quarter: 2010Q1

REPORT INFORMATION
  Report Type: 
  Country: None (occurrence: None)
  Receive Date: 20100128
  Receipt Date: 20100119
  Transmission Date: 20100710
  Serious: Yes (Other)
  Sender: FDA-Public Use
  Company Number: JP-JNJFOC-20100109208

PATIENT
  Age: 82 Year
  Sex: Female

DRUGS (5)
  1. LOPEMIN [Suspect]
     Indication: DIARRHOEA
     Route: 048
  2. FLUOROURACIL [Suspect]
     Indication: NEOPLASM MALIGNANT
     Route: 065
  3. CISPLATIN [Suspect]
     Indication: NEOPLASM MALIGNANT
     Route: 065
  4. ENSURE [Concomitant]
     Indication: ENTEROCOLITIS
  5. MS CONTIN [Concomitant]
     Indication: DIARRHOEA
     Route: 048

REACTIONS (2)
  - INTESTINAL OBSTRUCTION [None]
  - PNEUMATOSIS INTESTINALIS [None]
